FAERS Safety Report 17297341 (Version 5)
Quarter: 2020Q1

REPORT INFORMATION
  Report Type: Spontaneous
  Country: FR (occurrence: FR)
  Receive Date: 20200121
  Receipt Date: 20200316
  Transmission Date: 20200409
  Serious: Yes (Hospitalization, Other)
  Sender: FDA-Public Use
  Company Number: FR-ALLERGAN-2002341US

PATIENT
  Sex: Male
  Weight: 62 kg

DRUGS (1)
  1. SILODOSIN - BP [Suspect]
     Active Substance: SILODOSIN
     Indication: BENIGN PROSTATIC HYPERPLASIA
     Dosage: 8 MG, QPM
     Route: 048
     Dates: start: 20191108, end: 20200106

REACTIONS (8)
  - Cardiac murmur [Recovered/Resolved]
  - Fall [Recovered/Resolved]
  - Balance disorder [Unknown]
  - Road traffic accident [Unknown]
  - Angina pectoris [Recovered/Resolved]
  - Accident at home [Recovered/Resolved]
  - Syncope [Recovered/Resolved]
  - Legal problem [Unknown]

NARRATIVE: CASE EVENT DATE: 201911
